FAERS Safety Report 24417794 (Version 2)
Quarter: 2025Q1

REPORT INFORMATION
  Report Type: Report from Study
  Country: AR (occurrence: AR)
  Receive Date: 20241009
  Receipt Date: 20250220
  Transmission Date: 20250408
  Serious: Yes (Hospitalization, Other)
  Sender: GLAXOSMITHKLINE
  Company Number: AR-GLAXOSMITHKLINE INC-AR2024AMR121729

PATIENT

DRUGS (3)
  1. BELIMUMAB [Suspect]
     Active Substance: BELIMUMAB
     Indication: Systemic lupus erythematosus
     Route: 042
     Dates: start: 20130101, end: 2016
  2. BELIMUMAB [Suspect]
     Active Substance: BELIMUMAB
     Dosage: 800 MG, Q4W
     Route: 042
     Dates: start: 2019, end: 20240603
  3. BELIMUMAB [Suspect]
     Active Substance: BELIMUMAB
     Indication: Systemic lupus erythematosus
     Dosage: 200 MG, WE

REACTIONS (15)
  - Multiple injuries [Unknown]
  - Road traffic accident [Unknown]
  - Shock [Unknown]
  - Tooth loss [Unknown]
  - Lower limb fracture [Unknown]
  - Hand fracture [Unknown]
  - Foot fracture [Unknown]
  - Rib fracture [Unknown]
  - Cardiac failure [Unknown]
  - Systemic lupus erythematosus [Not Recovered/Not Resolved]
  - Infusion related hypersensitivity reaction [Recovered/Resolved]
  - Hypersensitivity [Unknown]
  - Memory impairment [Not Recovered/Not Resolved]
  - Drug effect less than expected [Unknown]
  - Product dose omission issue [Unknown]

NARRATIVE: CASE EVENT DATE: 20240603
